FAERS Safety Report 10578981 (Version 1)
Quarter: 2014Q4

REPORT INFORMATION
  Report Type: Spontaneous
  Country: IL (occurrence: IL)
  Receive Date: 20141112
  Receipt Date: 20141112
  Transmission Date: 20150529
  Serious: Yes (Other)
  Sender: FDA-Public Use
  Company Number: IL-BAYER-2014-166149

PATIENT
  Age: 19 Year
  Sex: Female

DRUGS (2)
  1. PHENYTOIN. [Concomitant]
     Active Substance: PHENYTOIN
     Indication: SEIZURE
  2. QLAIR [Suspect]
     Active Substance: DIENOGEST\ESTRADIOL VALERATE
     Indication: ANOVULATORY CYCLE

REACTIONS (3)
  - Off label use [None]
  - Intra-abdominal haemorrhage [None]
  - Drug interaction [None]
